FAERS Safety Report 4830723-1 (Version None)
Quarter: 2005Q4

REPORT INFORMATION
  Report Type: 
  Country: None (occurrence: None)
  Receive Date: 20051115
  Receipt Date: 20051103
  Transmission Date: 20060501
  Serious: Yes (Disabling)
  Sender: FDA-Public Use
  Company Number: 12803

PATIENT
  Age: 56 Year
  Sex: Male

DRUGS (7)
  1. METHOTREXATE [Suspect]
     Indication: RHEUMATOID ARTHRITIS
     Dosage: 2.5 MG WEEKLY
     Dates: start: 20050301
  2. PREDNISOLONE [Concomitant]
  3. DICLOFENAC [Concomitant]
  4. ALENDRONATE SODIUM [Concomitant]
  5. LANSOPRAZOLE [Concomitant]
  6. FOLIC ACID [Concomitant]
  7. CODEINE PHOSPHATE [Concomitant]

REACTIONS (1)
  - MEMORY IMPAIRMENT [None]
